FAERS Safety Report 20554681 (Version 2)
Quarter: 2022Q2

REPORT INFORMATION
  Report Type: Spontaneous
  Country: US (occurrence: US)
  Receive Date: 20220304
  Receipt Date: 20220429
  Transmission Date: 20220721
  Serious: No
  Sender: FDA-Public Use
  Company Number: US-BAYER-2022A033219

PATIENT
  Age: 23 Year
  Sex: Female

DRUGS (1)
  1. MIRALAX [Suspect]
     Active Substance: POLYETHYLENE GLYCOL 3350
     Indication: Gastrointestinal disorder prophylaxis
     Dosage: 0.25 DF
     Route: 048
     Dates: start: 20220303, end: 20220303

REACTIONS (3)
  - Vomiting [Recovering/Resolving]
  - Incorrect dose administered [None]
  - Product odour abnormal [None]

NARRATIVE: CASE EVENT DATE: 20220303
